FAERS Safety Report 4305236-6 (Version None)
Quarter: 2004Q1

REPORT INFORMATION
  Report Type: 
  Country: None (occurrence: None)
  Receive Date: 20040226
  Receipt Date: 20031204
  Transmission Date: 20041129
  Serious: Yes (Hospitalization)
  Sender: FDA-Public Use
  Company Number: GB-ROCHE-353270

PATIENT
  Age: 56 Year
  Sex: Female
  Weight: 73.8 kg

DRUGS (17)
  1. CAPECITABINE [Suspect]
     Dosage: INTERMITTENT THERAPY OF THREE WEEKS TREATMENT AND ONE WEEK REST.  ACTUAL DOSE RECEIVED WAS 1400 MG +
     Route: 048
     Dates: start: 20030922, end: 20040218
  2. GEMCITABINE [Suspect]
     Dosage: GIVEN ON DAY ONE AND EIGHT OF A THREE WEEK CYCLE.
     Route: 042
     Dates: start: 20030922, end: 20031028
  3. GEMCITABINE [Suspect]
     Route: 042
     Dates: start: 20031028, end: 20031118
  4. GEMCITABINE [Suspect]
     Dosage: TAKEN ON DAYS 1, 8 AND 15 OF A 21 DAY CYCLE
     Route: 042
     Dates: end: 20040218
  5. TROPISETRON [Concomitant]
     Route: 042
     Dates: start: 20030922, end: 20040218
  6. DEXAMETHASONE [Concomitant]
     Indication: NAUSEA
     Route: 042
     Dates: start: 20030922, end: 20040218
  7. ZANTAC [Concomitant]
     Indication: DYSPEPSIA
     Route: 048
     Dates: start: 20030904
  8. TRAMADOL [Concomitant]
     Indication: PAIN
     Route: 048
     Dates: start: 20031119
  9. FRAGMIN [Concomitant]
     Route: 058
     Dates: start: 20031119
  10. DOLASETRON [Concomitant]
     Route: 042
     Dates: start: 20031125
  11. PARACETAMOL [Concomitant]
     Indication: PAIN
     Route: 048
  12. RANITIDINE [Concomitant]
     Route: 048
     Dates: start: 20031117
  13. DALTEPARIN [Concomitant]
     Dates: start: 20031117
  14. ZOMETA [Concomitant]
     Indication: HYPERCALCAEMIA
     Route: 042
     Dates: start: 20031215, end: 20040127
  15. MOVICOL [Concomitant]
     Indication: CONSTIPATION
     Route: 048
     Dates: start: 20040120
  16. DURAGESIC [Concomitant]
     Indication: PAIN
     Dates: start: 20040115
  17. SEVREDOL [Concomitant]
     Route: 048
     Dates: start: 20040115

REACTIONS (8)
  - CONSTIPATION [None]
  - DEEP VEIN THROMBOSIS [None]
  - DISEASE PROGRESSION [None]
  - HYDRONEPHROSIS [None]
  - HYPERCALCAEMIA [None]
  - NEPHROLITHIASIS [None]
  - PANCREATIC CARCINOMA [None]
  - PULMONARY EMBOLISM [None]
